FAERS Safety Report 20560291 (Version 1)
Quarter: 2022Q1

REPORT INFORMATION
  Report Type: Report from Study
  Country: US (occurrence: US)
  Receive Date: 20220307
  Receipt Date: 20220307
  Transmission Date: 20220423
  Serious: Yes (Hospitalization)
  Sender: FDA-Public Use
  Company Number: US-Taiho Oncology Inc-EU-2022-00491

PATIENT
  Sex: Male

DRUGS (5)
  1. LONSURF [Suspect]
     Active Substance: TIPIRACIL HYDROCHLORIDE\TRIFLURIDINE
     Indication: Product used for unknown indication
     Dosage: CURRENT CYCLE UNKNOWN
     Route: 048
     Dates: start: 20220211
  2. ATENOLOL [Concomitant]
     Active Substance: ATENOLOL
  3. DULOXETINE [Concomitant]
     Active Substance: DULOXETINE
  4. SODIUM BICARBONATE [Concomitant]
     Active Substance: SODIUM BICARBONATE
  5. MEGACE [Concomitant]
     Active Substance: MEGESTROL ACETATE

REACTIONS (3)
  - Dehydration [Unknown]
  - Blood potassium increased [Unknown]
  - Blood sodium decreased [Unknown]
